FAERS Safety Report 5817992-6 (Version None)
Quarter: 2008Q3

REPORT INFORMATION
  Report Type: 
  Country: None (occurrence: None)
  Receive Date: 20080722
  Receipt Date: 20070731
  Transmission Date: 20090109
  Serious: No
  Sender: FDA-Public Use
  Company Number: US-BAYER-US-2007-028591

PATIENT
  Age: 70 Year
  Sex: Male
  Weight: 104 kg

DRUGS (3)
  1. MAGNEVIST [Suspect]
     Indication: ANGIOGRAM
     Dosage: UNIT DOSE: 30 ML
     Route: 042
     Dates: start: 20070730, end: 20070730
  2. PREDNISONE TAB [Concomitant]
  3. BENADRYL ^PFIZER WARNER-LAMBERT^ [Concomitant]

REACTIONS (3)
  - PARAESTHESIA [None]
  - PRURITUS [None]
  - URTICARIA [None]
